FAERS Safety Report 7543445-3 (Version None)
Quarter: 2011Q2

REPORT INFORMATION
  Report Type: 
  Country: None (occurrence: None)
  Receive Date: 20110613
  Receipt Date: 20110602
  Transmission Date: 20111010
  Serious: Yes (Other)
  Sender: FDA-Public Use
  Company Number: SG-PFIZER INC-2011126170

PATIENT
  Age: 25 Year
  Sex: Male

DRUGS (3)
  1. OXALIPLATIN [Suspect]
     Indication: HEPATIC NEOPLASM MALIGNANT
     Dosage: 75 MG/M2, EVERY 2 WEEKS FOR 11 CYCLES
  2. DOXORUBICIN HCL [Suspect]
     Indication: HEPATIC NEOPLASM MALIGNANT
     Dosage: 20 MG/M2, EVERY 2 WEEKS FOR 11 CYCLES
  3. BEVACIZUMAB [Suspect]
     Indication: HEPATIC NEOPLASM MALIGNANT
     Dosage: 7.5 MG/KG, EVERY 2 WEEKS FOR 11 CYCLES

REACTIONS (5)
  - VOMITING [None]
  - HYPONATRAEMIA [None]
  - HYPERCALCAEMIA [None]
  - TRANSAMINASES INCREASED [None]
  - ANAEMIA [None]
